FAERS Safety Report 13132925 (Version 1)
Quarter: 2017Q1

REPORT INFORMATION
  Report Type: Spontaneous
  Country: US (occurrence: US)
  Receive Date: 20170119
  Receipt Date: 20170119
  Transmission Date: 20170428
  Serious: Yes (Other)
  Sender: FDA-Public Use
  Company Number: None

PATIENT
  Age: 65 Year
  Sex: Male
  Weight: 83.25 kg

DRUGS (11)
  1. OMEPROLZOLE [Concomitant]
  2. C [Concomitant]
  3. LISINOPRIL. [Concomitant]
     Active Substance: LISINOPRIL
  4. ERYTHROMYCIN OPTHALMIC OINTMENT [Concomitant]
  5. FAMOTADINE [Concomitant]
  6. ERYTHROMYCIN OINTMENT [Suspect]
     Active Substance: ERYTHROMYCIN
     Indication: DRY EYE
     Dosage: ?          QUANTITY:3.5 GRAM;?
     Route: 047
     Dates: start: 20160814, end: 20160817
  7. FISH OIL E [Concomitant]
  8. ATOVASTATIN [Concomitant]
     Active Substance: ATORVASTATIN
  9. MEMANTINE. [Concomitant]
     Active Substance: MEMANTINE
  10. ASPIRIN. [Concomitant]
     Active Substance: ASPIRIN
  11. IRON [Concomitant]
     Active Substance: IRON

REACTIONS (3)
  - Liquid product physical issue [None]
  - Eye injury [None]
  - Product quality issue [None]

NARRATIVE: CASE EVENT DATE: 20160816
